FAERS Safety Report 5842891-3 (Version None)
Quarter: 2008Q3

REPORT INFORMATION
  Report Type: 
  Country: None (occurrence: None)
  Receive Date: 20080813
  Receipt Date: 20080805
  Transmission Date: 20090109
  Serious: Yes (Death)
  Sender: FDA-Public Use
  Company Number: US-RANBAXY-2008RR-16964

PATIENT

DRUGS (10)
  1. GABAPENTIN [Suspect]
     Indication: PAIN
     Dosage: 270-300MG
     Dates: start: 20041115
  2. GABAPENTIN [Suspect]
     Indication: PARKINSON'S DISEASE
     Dosage: 270-300MG
     Dates: start: 20050513
  3. GABAPENTIN [Suspect]
     Dosage: 270-300MG
     Dates: start: 20050913
  4. GABAPENTIN [Suspect]
     Dosage: 270-300MG
     Dates: start: 20051129
  5. GABAPENTIN [Suspect]
     Dosage: 270-300MG
     Dates: start: 20060219
  6. GABAPENTIN [Suspect]
     Dosage: 270-300MG
     Route: 048
     Dates: start: 20060505
  7. NEURONTIN [Concomitant]
     Indication: PAIN
     Dosage: 270-300MG
     Dates: start: 20030913
  8. NEURONTIN [Concomitant]
     Indication: PARKINSON'S DISEASE
     Dosage: 270-300MG
     Dates: start: 20031217
  9. NEURONTIN [Concomitant]
     Dosage: 270-300MG
     Dates: start: 20040228
  10. NEURONTIN [Concomitant]
     Dosage: 270-300MG
     Dates: start: 20040505

REACTIONS (5)
  - COMPLETED SUICIDE [None]
  - DRUG INEFFECTIVE [None]
  - DRUG INEFFECTIVE FOR UNAPPROVED INDICATION [None]
  - PAIN [None]
  - PARKINSON'S DISEASE [None]
